FAERS Safety Report 13351457 (Version 1)
Quarter: 2017Q1

REPORT INFORMATION
  Report Type: Report from Study
  Country: US (occurrence: US)
  Receive Date: 20170320
  Receipt Date: 20170320
  Transmission Date: 20170429
  Serious: Yes (Hospitalization)
  Sender: FDA-Public Use
  Company Number: US-BAYER-2017-042586

PATIENT
  Age: 50 Year
  Sex: Male

DRUGS (1)
  1. NEXAVAR [Suspect]
     Active Substance: SORAFENIB
     Indication: HEPATOCELLULAR CARCINOMA
     Dosage: 200 MG, BID
     Route: 048
     Dates: start: 20170302, end: 20170307

REACTIONS (11)
  - Pyrexia [None]
  - Chromaturia [None]
  - Abdominal distension [None]
  - Alopecia [None]
  - Jaundice [None]
  - Abdominal pain [Recovering/Resolving]
  - Pain in extremity [None]
  - Fatigue [None]
  - Decreased appetite [None]
  - Exercise tolerance decreased [None]
  - Wheezing [Recovering/Resolving]

NARRATIVE: CASE EVENT DATE: 201703
